FAERS Safety Report 8859525 (Version 3)
Quarter: 2013Q1

REPORT INFORMATION
  Report Type: Report from Study
  Country: US (occurrence: US)
  Receive Date: 20121024
  Receipt Date: 20130306
  Transmission Date: 20140127
  Serious: Yes (Death, Hospitalization, Other)
  Sender: FDA-Public Use
  Company Number: US-BRISTOL-MYERS SQUIBB COMPANY-16429193

PATIENT
  Age: 74 Year
  Sex: Male
  Weight: 89.2 kg

DRUGS (17)
  1. IPILIMUMAB [Suspect]
     Indication: MALIGNANT MELANOMA
     Dosage: LAST DOSE:25JAN12?NO OF COURSES:1 - 880 MG
     Route: 042
     Dates: start: 20120125, end: 20120306
  2. PREDNISONE [Suspect]
  3. TRAZODONE HCL [Concomitant]
  4. MEGESTROL [Concomitant]
  5. CREON [Concomitant]
  6. BUDESONIDE [Concomitant]
  7. BACTRIM [Concomitant]
  8. ACETAMINOPHEN [Concomitant]
  9. PANTOPRAZOLE [Concomitant]
  10. NYSTATIN [Concomitant]
  11. MAGNESIUM CHLORIDE [Concomitant]
  12. IPRATROPIUM [Concomitant]
  13. FLUCONAZOLE [Concomitant]
  14. CLONAZEPAM [Concomitant]
  15. BENZONATATE [Concomitant]
  16. MYLANTA [Concomitant]
  17. CODEINE [Concomitant]

REACTIONS (13)
  - Colitis [Fatal]
  - Diarrhoea [Recovering/Resolving]
  - Weight decreased [Unknown]
  - Fatigue [Unknown]
  - Thrombocytopenia [Recovered/Resolved]
  - Diverticulitis [Unknown]
  - Rash maculo-papular [Recovering/Resolving]
  - Idiopathic thrombocytopenic purpura [Unknown]
  - Respiratory syncytial virus infection [Unknown]
  - Cytomegalovirus infection [Unknown]
  - Clostridium difficile infection [Unknown]
  - Coccidioidomycosis [Unknown]
  - Insomnia [Unknown]
